FAERS Safety Report 25327240 (Version 4)
Quarter: 2025Q2

REPORT INFORMATION
  Report Type: Report from Study
  Country: US (occurrence: US)
  Receive Date: 20250517
  Receipt Date: 20250624
  Transmission Date: 20250716
  Serious: Yes (Death, Life-Threatening, Hospitalization, Other)
  Sender: UNITED THERAPEUTICS
  Company Number: US-UNITED THERAPEUTICS-UNT-2025-010113

PATIENT
  Age: 68 Year
  Sex: Male

DRUGS (4)
  1. TREPROSTINIL [Suspect]
     Active Substance: TREPROSTINIL
     Indication: Pulmonary arterial hypertension
     Dosage: 6 MG, TID
  2. TREPROSTINIL [Suspect]
     Active Substance: TREPROSTINIL
  3. ORENITRAM [Suspect]
     Active Substance: TREPROSTINIL
     Indication: Pulmonary arterial hypertension
  4. ORENITRAM [Suspect]
     Active Substance: TREPROSTINIL
     Indication: Pulmonary arterial hypertension

REACTIONS (15)
  - Death [Fatal]
  - Respiratory failure [Recovered/Resolved]
  - Subdural haematoma [Recovered/Resolved]
  - Spinal cord oedema [Recovered/Resolved]
  - Myelopathy [Recovered/Resolved]
  - Head injury [Recovered/Resolved]
  - Spinal cord injury cervical [Unknown]
  - Spinal cord haematoma [Recovered/Resolved]
  - Diabetic ketoacidosis [Recovered/Resolved]
  - Hypotension [Recovered/Resolved]
  - Syncope [Recovered/Resolved]
  - Quadriparesis [Recovered/Resolved]
  - Polyneuropathy [Recovered/Resolved]
  - Fall [Recovered/Resolved]
  - Hypertension [Recovered/Resolved]

NARRATIVE: CASE EVENT DATE: 20250313
